FAERS Safety Report 6613261-5 (Version None)
Quarter: 2010Q1

REPORT INFORMATION
  Report Type: 
  Country: None (occurrence: None)
  Receive Date: 20100304
  Receipt Date: 20100223
  Transmission Date: 20100710
  Serious: Yes (Hospitalization)
  Sender: FDA-Public Use
  Company Number: US-BRISTOL-MYERS SQUIBB COMPANY-14953079

PATIENT
  Age: 74 Year
  Sex: Male
  Weight: 66 kg

DRUGS (6)
  1. ERBITUX [Suspect]
     Indication: OESOPHAGEAL ADENOCARCINOMA
     Dates: start: 20091215, end: 20100120
  2. TAXOL [Suspect]
     Indication: OESOPHAGEAL ADENOCARCINOMA
     Dates: start: 20091215, end: 20100120
  3. CISPLATIN [Suspect]
     Indication: OESOPHAGEAL ADENOCARCINOMA
     Dates: start: 20091215, end: 20100120
  4. RADIATION THERAPY [Suspect]
     Indication: OESOPHAGEAL ADENOCARCINOMA
     Dosage: 1DF=43.2GY NO OF FRAC:24 NO OF ELAPD DAY:37 LAST DOSE:20JAN INTRPTD(21JAN10)
     Dates: start: 20091215
  5. LISINOPRIL [Concomitant]
  6. HYDROCHLOROTHIAZIDE [Concomitant]

REACTIONS (5)
  - ATRIAL FIBRILLATION [None]
  - DEHYDRATION [None]
  - HAEMOGLOBIN DECREASED [None]
  - HYPOPHOSPHATAEMIA [None]
  - WHITE BLOOD CELL COUNT DECREASED [None]
